FAERS Safety Report 9965245 (Version 1)
Quarter: 2014Q1

REPORT INFORMATION
  Report Type: Report from Study
  Country: US (occurrence: US)
  Receive Date: 20140305
  Receipt Date: 20140305
  Transmission Date: 20141002
  Serious: No
  Sender: FDA-Public Use
  Company Number: US-ABBVIE-13P-163-1126099-00

PATIENT
  Age: 31 Year
  Sex: Female
  Weight: 127.12 kg

DRUGS (6)
  1. HUMIRA [Suspect]
     Indication: BEHCET^S SYNDROME
     Dates: start: 201304
  2. HUMIRA [Suspect]
     Indication: CROHN^S DISEASE
  3. WELLBUTRIN [Concomitant]
     Indication: DEPRESSION
  4. DEPAKOTE [Concomitant]
     Indication: MIGRAINE
  5. TOPAMAX [Concomitant]
     Indication: MIGRAINE
  6. LISINOPRIL/HCTZ [Concomitant]
     Indication: HYPERTENSION

REACTIONS (5)
  - Nervousness [Not Recovered/Not Resolved]
  - Headache [Recovered/Resolved]
  - Palpitations [Recovered/Resolved]
  - Chest pain [Recovered/Resolved]
  - Insomnia [Recovered/Resolved]
